FAERS Safety Report 8871956 (Version 1)
Quarter: 2012Q4

REPORT INFORMATION
  Report Type: 
  Country: US (occurrence: US)
  Receive Date: 20121023
  Receipt Date: 20121023
  Transmission Date: 20130627
  Serious: Yes (Other)
  Sender: FDA-Public Use
  Company Number: US-ASTELLAS-2012US005229

PATIENT

DRUGS (1)
  1. PROGRAF [Suspect]
     Indication: LIVER TRANSPLANT
     Dosage: UNK
     Route: 065

REACTIONS (3)
  - Metabolic encephalopathy [Unknown]
  - Convulsion [Unknown]
  - Immunosuppressant drug level decreased [Unknown]
